FAERS Safety Report 5616450-1 (Version None)
Quarter: 2008Q1

REPORT INFORMATION
  Report Type: 
  Country: None (occurrence: None)
  Receive Date: 20080207
  Receipt Date: 20080107
  Transmission Date: 20080703
  Serious: No
  Sender: FDA-Public Use
  Company Number: US-BAYER-200810527NA

PATIENT
  Age: 40 Year
  Sex: Female
  Weight: 77 kg

DRUGS (2)
  1. YAZ [Suspect]
     Indication: CONTRACEPTION
     Route: 048
     Dates: start: 20071120
  2. LEXAPRO [Concomitant]
     Indication: ANXIETY
     Dates: start: 20061201

REACTIONS (1)
  - METRORRHAGIA [None]
